FAERS Safety Report 12568822 (Version 1)
Quarter: 2016Q3

REPORT INFORMATION
  Report Type: Spontaneous
  Country: US (occurrence: US)
  Receive Date: 20160719
  Receipt Date: 20160719
  Transmission Date: 20161109
  Serious: Yes (Hospitalization)
  Sender: FDA-Public Use
  Company Number: US-SHIRE-US201608377

PATIENT
  Sex: Female
  Weight: 125.17 kg

DRUGS (4)
  1. CARBATROL [Suspect]
     Active Substance: CARBAMAZEPINE
     Indication: TRIGEMINAL NEURALGIA
     Dosage: 600 MG, 2X/DAY:BID (3 CAPSULS IN THE AM AND PM)
     Route: 048
     Dates: end: 201211
  2. LEVOTHYROXINE. [Concomitant]
     Active Substance: LEVOTHYROXINE
     Indication: THYROID DISORDER
     Dosage: 100 ?G, 1X/DAY:QD
     Route: 048
  3. CARBATROL [Suspect]
     Active Substance: CARBAMAZEPINE
     Indication: TEMPOROMANDIBULAR JOINT SYNDROME
     Dosage: 200 MG, 2X/DAY:BID
     Route: 048
     Dates: start: 201301, end: 201305
  4. CARBATROL [Suspect]
     Active Substance: CARBAMAZEPINE
     Dosage: 400 MG, 2X/DAY:BID
     Route: 048
     Dates: start: 201305

REACTIONS (4)
  - Condition aggravated [Recovered/Resolved]
  - Product quality issue [Unknown]
  - Incision site complication [Recovered/Resolved]
  - Temporomandibular joint syndrome [Recovered/Resolved]

NARRATIVE: CASE EVENT DATE: 2012
